FAERS Safety Report 24429300 (Version 2)
Quarter: 2024Q4

REPORT INFORMATION
  Report Type: Spontaneous
  Country: JP (occurrence: JP)
  Receive Date: 20241011
  Receipt Date: 20241203
  Transmission Date: 20250115
  Serious: Yes (Hospitalization, Other)
  Sender: GLAXOSMITHKLINE
  Company Number: JP-GSK-JP2024JPN123392

PATIENT

DRUGS (2)
  1. VALTREX [Suspect]
     Active Substance: VALACYCLOVIR HYDROCHLORIDE
     Indication: Herpes zoster
     Dosage: 500 MG, QD
  2. ZOVIRAX [Suspect]
     Active Substance: ACYCLOVIR
     Indication: Encephalitis viral
     Dosage: 250 MG, QD
     Route: 042

REACTIONS (4)
  - Toxic encephalopathy [Unknown]
  - Dyslalia [Unknown]
  - Disorientation [Unknown]
  - Altered state of consciousness [Recovered/Resolved]
